FAERS Safety Report 18211835 (Version 1)
Quarter: 2020Q3

REPORT INFORMATION
  Report Type: Spontaneous
  Country: JP (occurrence: JP)
  Receive Date: 20200831
  Receipt Date: 20200831
  Transmission Date: 20201103
  Serious: Yes (Other)
  Sender: FDA-Public Use
  Company Number: JP-ROCHE-2667938

PATIENT
  Age: 69 Year
  Sex: Female

DRUGS (3)
  1. GAZYVA [Suspect]
     Active Substance: OBINUTUZUMAB
     Indication: LYMPHOMA
     Dosage: MOST RECENT DOSE IN /APR/2020.
     Route: 041
     Dates: start: 202004
  2. NEUTROGIN [Suspect]
     Active Substance: LENOGRASTIM
     Indication: NEUTROPHIL COUNT DECREASED
  3. NEUTROGIN [Suspect]
     Active Substance: LENOGRASTIM
     Indication: WHITE BLOOD CELL COUNT DECREASED
     Dosage: DOSAGE IS UNCERTAIN.
     Route: 065
     Dates: start: 2020

REACTIONS (5)
  - Neutrophil count decreased [Unknown]
  - Blood albumin decreased [Unknown]
  - Weight decreased [Unknown]
  - Stomatitis [Unknown]
  - White blood cell count decreased [Unknown]

NARRATIVE: CASE EVENT DATE: 2020
